FAERS Safety Report 6426476-6 (Version None)
Quarter: 2009Q4

REPORT INFORMATION
  Report Type: 
  Country: None (occurrence: None)
  Receive Date: 20091103
  Receipt Date: 20091103
  Transmission Date: 20100525
  Serious: Yes (Other)
  Sender: FDA-Public Use
  Company Number: None

PATIENT
  Sex: Female

DRUGS (1)
  1. CREST WHITESTRIPS, ADVANCED SEAL [Suspect]
     Dosage: 2 STRIPS 1/DAY INTRAORAL
     Route: 048

REACTIONS (7)
  - CHEMICAL INJURY [None]
  - DYSGEUSIA [None]
  - EPISTAXIS [None]
  - HAEMORRHAGE [None]
  - HYPERSENSITIVITY [None]
  - THROAT IRRITATION [None]
  - TOOTHACHE [None]
